FAERS Safety Report 9924045 (Version 2)
Quarter: 2014Q1

REPORT INFORMATION
  Report Type: Report from Study
  Country: US (occurrence: US)
  Receive Date: 20140225
  Receipt Date: 20140321
  Transmission Date: 20141002
  Serious: Yes (Death)
  Sender: FDA-Public Use
  Company Number: US-ROCHE-1355834

PATIENT
  Age: 84 Year
  Sex: Female

DRUGS (8)
  1. LUCENTIS [Suspect]
     Indication: PRODUCT USED FOR UNKNOWN INDICATION
     Route: 065
  2. LANTUS [Concomitant]
     Route: 065
  3. SIMVASTATIN [Concomitant]
     Route: 065
  4. ZOLOFT [Concomitant]
     Route: 065
  5. BYSTOLIC [Concomitant]
     Route: 065
  6. LEVOTHYROXINE [Concomitant]
     Route: 065
  7. PROTONIX (UNITED STATES) [Concomitant]
     Route: 065
  8. HUMALOG [Concomitant]
     Route: 065

REACTIONS (3)
  - Urinary tract infection [Fatal]
  - Dementia [Fatal]
  - Sepsis [Fatal]
